FAERS Safety Report 10793572 (Version 1)
Quarter: 2015Q1

REPORT INFORMATION
  Report Type: Spontaneous
  Country: US (occurrence: None)
  Receive Date: 20150212
  Receipt Date: 20150212
  Transmission Date: 20150721
  Serious: Yes (Death)
  Sender: FDA-Public Use
  Company Number: None

PATIENT
  Age: 24 Year
  Sex: Male
  Weight: 47.63 kg

DRUGS (1)
  1. DEPAKOTE ER [Suspect]
     Active Substance: DIVALPROEX SODIUM
     Indication: EPILEPSY
     Dosage: 1  AT BEDTIME TAKEN BY MOUTH
     Route: 048

REACTIONS (3)
  - Hallucination, auditory [None]
  - Seizure [None]
  - Completed suicide [None]

NARRATIVE: CASE EVENT DATE: 20141204
